FAERS Safety Report 9199782 (Version 4)
Quarter: 2013Q3

REPORT INFORMATION
  Report Type: Report from Study
  Country: GB (occurrence: GB)
  Receive Date: 20130329
  Receipt Date: 20130829
  Transmission Date: 20140515
  Serious: Yes (Life-Threatening, Hospitalization, Other)
  Sender: FDA-Public Use
  Company Number: GB-ABBOTT-13P-167-1035416-00

PATIENT
  Age: 40 Year
  Sex: Female
  Weight: 62 kg

DRUGS (16)
  1. HUMIRA [Suspect]
     Indication: CROHN^S DISEASE
     Dosage: BASELINE
     Route: 058
     Dates: start: 20080814, end: 20080814
  2. HUMIRA [Suspect]
     Dosage: WEEK 2
     Route: 058
  3. HUMIRA [Suspect]
     Route: 058
     Dates: start: 20081101
  4. LEKOVIT CA [Concomitant]
     Indication: OSTEOPOROSIS
     Dates: start: 20080901, end: 2012
  5. FLUOXETINE [Concomitant]
     Indication: DEPRESSION
     Dates: start: 2006
  6. HYDROXOCOBALAMIN [Concomitant]
     Indication: ANAEMIA
     Route: 030
     Dates: start: 20090916
  7. FOLIC ACID [Concomitant]
     Indication: ANAEMIA
     Dates: start: 20090928
  8. OMEPRAZOLE [Concomitant]
     Indication: GASTROOESOPHAGEAL REFLUX PROPHYLAXIS
     Dates: start: 201111, end: 20121220
  9. LOPERAMIDE [Concomitant]
     Indication: STOMA CARE
     Dates: start: 201109
  10. FENTANYL [Concomitant]
     Indication: PAIN MANAGEMENT
     Dates: start: 201109
  11. PREGABALIN [Concomitant]
     Indication: ANALGESIC THERAPY
     Dates: start: 201110
  12. MAGNESIUM GLYCEROPHOSPHATE [Concomitant]
     Indication: BLOOD MAGNESIUM DECREASED
     Dates: start: 201112
  13. OXYCODONE [Concomitant]
     Indication: PAIN
     Dates: start: 201109
  14. LANSOPRAZOL [Concomitant]
     Indication: DYSPEPSIA
     Dates: start: 20121220
  15. CALOGEN [Concomitant]
     Indication: MEDICAL DIET
     Dates: start: 20121220
  16. VITAMIN D [Concomitant]
     Indication: ANAEMIA
     Dates: start: 1985

REACTIONS (2)
  - Sepsis [Recovered/Resolved]
  - Influenza [Recovered/Resolved]
